FAERS Safety Report 11685630 (Version 1)
Quarter: 2015Q4

REPORT INFORMATION
  Report Type: Spontaneous
  Country: TR (occurrence: TR)
  Receive Date: 20151030
  Receipt Date: 20151030
  Transmission Date: 20160304
  Serious: Yes (Hospitalization, Other)
  Sender: FDA-Public Use
  Company Number: TR-ACTAVIS-2015-19581

PATIENT
  Age: 28 Year
  Sex: Male

DRUGS (1)
  1. TRAMADOL (UNKNOWN) [Suspect]
     Active Substance: TRAMADOL
     Indication: PAIN
     Dosage: 100 MG, DAILY
     Route: 065

REACTIONS (2)
  - Waxy flexibility [Recovered/Resolved]
  - Mania [Recovered/Resolved]
